FAERS Safety Report 7913066-9 (Version None)
Quarter: 2011Q4

REPORT INFORMATION
  Report Type: 
  Country: None (occurrence: None)
  Receive Date: 20111114
  Receipt Date: 20111104
  Transmission Date: 20120403
  Serious: Yes (Other)
  Sender: FDA-Public Use
  Company Number: US-BAYER-2011-107624

PATIENT
  Sex: Female

DRUGS (3)
  1. DROSPIRENONE AND ETHINYL ESTRADIOL [Suspect]
     Dosage: UNK
     Route: 048
     Dates: start: 20080701, end: 20090401
  2. YAZ [Suspect]
     Route: 048
  3. YASMIN [Suspect]
     Route: 048

REACTIONS (3)
  - INJURY [None]
  - PAIN [None]
  - GALLBLADDER DISORDER [None]
